FAERS Safety Report 9513325 (Version 1)
Quarter: 2013Q1

REPORT INFORMATION
  Report Type: Spontaneous
  Country: US (occurrence: None)
  Receive Date: 20130305
  Receipt Date: 20130305
  Transmission Date: 20140127
  Serious: Yes (Hospitalization)
  Sender: FDA-Public Use
  Company Number: 163-21880-12021775

PATIENT
  Age: 71 Year
  Sex: Female
  Weight: 99.79 kg

DRUGS (21)
  1. REVLIMID (LENALIDOMIDE) (25 MILLIGRAM, CAPSULES) [Suspect]
     Indication: PLASMA CELL MYELOMA
     Dosage: DAILY X 14 DAYS
     Route: 048
     Dates: start: 201101
  2. AMBIEN (ZOLPIDEM TARTRATE) [Concomitant]
  3. ASPIRIN (ACETYLSALICYLIC ACID) [Concomitant]
  4. ALLEGRA [Concomitant]
  5. ACYCLOVIR (ACICLOVIR) (ACICLOVIR) [Concomitant]
  6. BACTRIM (BACTRIM) (SULFAMETHOXAZOLE, TRIMETHOPRIM) [Concomitant]
  7. CALCIUM + VITAMIN D (LEKOVIT CA) [Concomitant]
  8. DOXYCYCLINE (DOXYCYCLINE) [Concomitant]
  9. FISH OIL (FISH OIL) [Concomitant]
  10. GABAPENTIN (GABAPENTIN) [Concomitant]
  11. GLUCOSAMINE/CHONDROITIN (CHONDROITIN SODIUM SULFATE W/GLUCOSAMINE HCL) [Concomitant]
  12. LASIX (FUROSEMIDE) [Concomitant]
  13. LISINOPRIL (LISINOPRIL) [Concomitant]
  14. METOPROLOL (METOPROLOL) [Concomitant]
  15. VITAMINS [Concomitant]
  16. NEXIUM [Concomitant]
  17. VITAMIN B6 (PYRIDOXINE HYDROCHLORIDE) [Concomitant]
  18. CALCIUM (CALCIUM) [Concomitant]
  19. VITAMIN B12 (CYANOCOBALAMIN) [Concomitant]
  20. ADVAIR (SERETIDE MITE) [Concomitant]
  21. KAOPECTATE (KAOPECTATE) [Concomitant]

REACTIONS (6)
  - Hypotension [None]
  - Pneumonia [None]
  - Loss of consciousness [None]
  - Febrile neutropenia [None]
  - White blood cell count decreased [None]
  - Diarrhoea [None]
